FAERS Safety Report 5470688-5 (Version None)
Quarter: 2007Q3

REPORT INFORMATION
  Report Type: 
  Country: None (occurrence: None)
  Receive Date: 20070820
  Receipt Date: 20070511
  Transmission Date: 20080115
  Serious: No
  Sender: FDA-Public Use
  Company Number: WAES 0705USA02524

PATIENT
  Age: 82 Year
  Sex: Male
  Weight: 81.6475 kg

DRUGS (5)
  1. JANUVIA [Suspect]
     Indication: DIABETES MELLITUS
     Dosage: 100 MG/DAILY/PO
     Route: 048
     Dates: start: 20070105
  2. BENICAR HCT [Concomitant]
  3. CARDIZEM [Concomitant]
  4. LIPITOR [Concomitant]
  5. GLIMEPIRIDE [Concomitant]

REACTIONS (2)
  - CONFUSIONAL STATE [None]
  - SLEEP DISORDER [None]
